FAERS Safety Report 6665298-8 (Version None)
Quarter: 2010Q1

REPORT INFORMATION
  Report Type: 
  Country: None (occurrence: None)
  Receive Date: 20100331
  Receipt Date: 20100318
  Transmission Date: 20100710
  Serious: Yes (Other)
  Sender: FDA-Public Use
  Company Number: RB-05291-2010

PATIENT
  Age: 71 Year
  Sex: Female

DRUGS (3)
  1. MUCINEX [Suspect]
     Dosage: 600 MG TOTAL ORAL
     Route: 048
     Dates: start: 20100317
  2. MUCINEX [Suspect]
     Indication: UPPER RESPIRATORY TRACT CONGESTION
     Dosage: 1200 MG 1X/12 HOURS ORAL 1 WEEK 3 DAYS UNTIL NOT CONTINUING, NI
     Route: 048
  3. SINGULAIR [Suspect]
     Dates: end: 20100301

REACTIONS (3)
  - ABNORMAL DREAMS [None]
  - FEAR [None]
  - HALLUCINATION, VISUAL [None]
